FAERS Safety Report 17698695 (Version 6)
Quarter: 2020Q4

REPORT INFORMATION
  Report Type: Spontaneous
  Country: BR (occurrence: BR)
  Receive Date: 20200423
  Receipt Date: 20201102
  Transmission Date: 20210113
  Serious: Yes (Hospitalization)
  Sender: FDA-Public Use
  Company Number: BR-PFIZER INC-2018089265

PATIENT
  Age: 62 Year
  Sex: Male

DRUGS (1)
  1. CAVERJECT [Suspect]
     Active Substance: ALPROSTADIL
     Dosage: UNK
     Dates: start: 2017

REACTIONS (7)
  - Wrong technique in product usage process [Unknown]
  - Poor quality product administered [Unknown]
  - Product storage error [Unknown]
  - Haematuria [Unknown]
  - Urinary tract infection [Unknown]
  - Liquid product physical issue [Unknown]
  - Product solubility abnormal [Unknown]

NARRATIVE: CASE EVENT DATE: 20200411
